FAERS Safety Report 9135675 (Version 1)
Quarter: 2013Q1

REPORT INFORMATION
  Report Type: Spontaneous
  Country: US (occurrence: US)
  Receive Date: 20130304
  Receipt Date: 20130304
  Transmission Date: 20140127
  Serious: No
  Sender: FDA-Public Use
  Company Number: US-ENDO PHARMACEUTICALS INC.-ENDC20110203

PATIENT
  Sex: Male

DRUGS (6)
  1. ENDOCET 10MG/325MG [Suspect]
     Indication: ROTATOR CUFF SYNDROME
     Dosage: UNK
     Route: 048
     Dates: start: 20110311
  2. ENDOCET 10MG/325MG [Suspect]
     Indication: ARTHRALGIA
  3. ENDOCET 10MG/325MG [Suspect]
     Indication: BACK PAIN
  4. ENDOCET 10MG/325MG [Suspect]
     Indication: ROTATOR CUFF SYNDROME
     Dosage: UNK
     Route: 048
     Dates: start: 20110311
  5. ENDOCET 10MG/325MG [Suspect]
     Indication: ARTHRALGIA
  6. ENDOCET 10MG/325MG [Suspect]
     Indication: BACK PAIN

REACTIONS (3)
  - Abdominal pain [Not Recovered/Not Resolved]
  - Chromaturia [Not Recovered/Not Resolved]
  - Abdominal pain upper [Not Recovered/Not Resolved]
